FAERS Safety Report 7230252-4 (Version None)
Quarter: 2011Q1

REPORT INFORMATION
  Report Type: 
  Country: None (occurrence: None)
  Receive Date: 20110118
  Receipt Date: 20110106
  Transmission Date: 20110831
  Serious: Yes (Other)
  Sender: FDA-Public Use
  Company Number: US-PFIZER INC-2010133922

PATIENT
  Sex: Female

DRUGS (3)
  1. PAXIL [Concomitant]
     Indication: ANXIETY
     Dosage: UNK
     Dates: start: 19950101, end: 20100101
  2. PAXIL [Concomitant]
     Indication: DEPRESSION
  3. CHANTIX [Suspect]
     Indication: SMOKING CESSATION THERAPY
     Dosage: 0.5 MG
     Dates: start: 20081029, end: 20081121

REACTIONS (7)
  - DEPRESSION [None]
  - HALLUCINATION [None]
  - MENTAL DISORDER [None]
  - ANXIETY [None]
  - FEAR [None]
  - LOSS OF CONSCIOUSNESS [None]
  - ANGER [None]
